FAERS Safety Report 12802674 (Version 1)
Quarter: 2016Q4

REPORT INFORMATION
  Report Type: Spontaneous
  Country: BR (occurrence: BR)
  Receive Date: 20161003
  Receipt Date: 20161003
  Transmission Date: 20170207
  Serious: Yes (Other)
  Sender: FDA-Public Use
  Company Number: BR-PFIZER INC-2016453751

PATIENT
  Age: 87 Year
  Sex: Female
  Weight: 86 kg

DRUGS (1)
  1. XALATAN [Suspect]
     Active Substance: LATANOPROST
     Indication: GLAUCOMA
     Dosage: 1 DROP EACH EYE, DAILY (AT 8PM)
     Route: 047
     Dates: start: 2011, end: 20160926

REACTIONS (1)
  - Hordeolum [Unknown]
